FAERS Safety Report 9470694 (Version 1)
Quarter: 2013Q3

REPORT INFORMATION
  Report Type: Report from Study
  Country: US (occurrence: US)
  Receive Date: 20130822
  Receipt Date: 20130822
  Transmission Date: 20140515
  Serious: Yes (Hospitalization)
  Sender: FDA-Public Use
  Company Number: US-MYLANLABS-2013S1016388

PATIENT
  Age: 5 Year
  Sex: Female
  Weight: 17.4 kg

DRUGS (17)
  1. MONOCLONAL ANTIBODIES [Suspect]
     Indication: NEUROBLASTOMA
     Route: 042
     Dates: start: 20130617, end: 20130620
  2. ISOTRETINOIN CAPSULES [Suspect]
     Indication: NEUROBLASTOMA
     Route: 048
     Dates: start: 20130624
  3. INTERLEUKIN-2 [Suspect]
     Indication: NEUROBLASTOMA
     Route: 042
     Dates: start: 20130617, end: 20130620
  4. GRANULOCYTE MACROPHAGE COLONY STIM FACTOR [Suspect]
     Indication: NEUROBLASTOMA
     Route: 058
     Dates: start: 20130517, end: 20130530
  5. VISTARIL [Concomitant]
     Indication: NAUSEA
     Dosage: ALSO ORDERED 7.5ML ORAL EVERY 4 HOURS AS NEEDED ITCHING/VOMITING
     Route: 042
     Dates: start: 20130613, end: 20130621
  6. MIRALAX /00754501/ [Concomitant]
     Indication: PRODUCT USED FOR UNKNOWN INDICATION
     Route: 048
  7. NEURONTIN [Concomitant]
     Indication: PAIN
     Route: 048
     Dates: start: 20130621
  8. PENTAMIDINE [Concomitant]
     Indication: PRODUCT USED FOR UNKNOWN INDICATION
     Route: 042
  9. ZOFRAN [Concomitant]
     Indication: NAUSEA
     Dosage: ALSO PRESCRIBED PO 4ML EVERY 6 HOURS AS NEEDED, PROPHYLAXIS OF NAUSEA/VOMITING
     Route: 042
     Dates: start: 20130610, end: 20130621
  10. PARACETAMOL [Concomitant]
     Indication: PYREXIA
     Dosage: FEVER/PAIN
     Route: 048
     Dates: start: 20130618, end: 20130621
  11. MORPHINE [Concomitant]
     Indication: PAIN
     Route: 042
     Dates: start: 20130617, end: 20130620
  12. BENADRYL [Concomitant]
     Indication: PREMEDICATION
     Route: 042
     Dates: start: 20130611, end: 20130621
  13. COLACE [Concomitant]
     Indication: CONSTIPATION
     Route: 048
     Dates: start: 20130617, end: 20130621
  14. FENTANYL [Concomitant]
     Indication: PAIN
     Route: 042
     Dates: start: 20130620, end: 20130621
  15. LASIX [Concomitant]
     Indication: FLUID OVERLOAD
     Route: 042
     Dates: start: 20130619, end: 20130619
  16. LEVOFLOXACIN [Concomitant]
     Indication: PROPHYLAXIS
     Route: 042
     Dates: start: 20130618, end: 20130621
  17. NUBAIN [Concomitant]
     Indication: PRODUCT USED FOR UNKNOWN INDICATION
     Route: 042
     Dates: start: 20130618, end: 20130620

REACTIONS (1)
  - Gastroenteritis viral [Recovered/Resolved]
